FAERS Safety Report 4283577-9 (Version None)
Quarter: 2004Q1

REPORT INFORMATION
  Report Type: 
  Country: None (occurrence: None)
  Receive Date: 20040121
  Receipt Date: 20030915
  Transmission Date: 20041129
  Serious: Yes (Hospitalization)
  Sender: FDA-Public Use
  Company Number: A03200302148

PATIENT
  Age: 61 Year
  Sex: Female
  Weight: 92.9874 kg

DRUGS (2)
  1. PLAVIX [Suspect]
     Indication: ARTERIAL THROMBOSIS
     Dosage: 75 MG QD - ORAL
     Route: 048
     Dates: start: 20030801, end: 20030913
  2. METFORMIN HYDROCHLORIDE [Concomitant]

REACTIONS (4)
  - ASTHENIA [None]
  - DRY SKIN [None]
  - DYSPNOEA [None]
  - RASH PAPULAR [None]
